FAERS Safety Report 8926686 (Version 1)
Quarter: 2012Q4

REPORT INFORMATION
  Report Type: 
  Country: DK (occurrence: DK)
  Receive Date: 20121127
  Receipt Date: 20121127
  Transmission Date: 20130627
  Serious: Yes (Hospitalization)
  Sender: FDA-Public Use
  Company Number: DK-PFIZER INC-2012293627

PATIENT
  Age: 65 Year
  Sex: Male
  Weight: 67.8 kg

DRUGS (5)
  1. GENOTROPIN [Suspect]
     Dosage: 0.5 mg, 1x/day, 7 injections/week
     Route: 058
     Dates: start: 20011207
  2. TESTOSTERONE [Concomitant]
     Indication: LUTEINIZING HORMONE DEFICIENCY
     Dosage: UNK
     Dates: start: 19980506
  3. TESTOSTERONE [Concomitant]
     Indication: FOLLICLE-STIMULATING HORMONE DEFICIENCY
  4. HYDROCORTISONE [Concomitant]
     Indication: ACTH DECREASED
     Dosage: UNK
     Dates: start: 19980428
  5. LEVOTHYROXINE [Concomitant]
     Indication: THYROID DISORDER
     Dosage: UNK
     Dates: start: 19980504

REACTIONS (1)
  - Joint dislocation [Unknown]
